FAERS Safety Report 16728867 (Version 1)
Quarter: 2019Q3

REPORT INFORMATION
  Report Type: Spontaneous
  Country: US (occurrence: US)
  Receive Date: 20190822
  Receipt Date: 20190822
  Transmission Date: 20191005
  Serious: No
  Sender: FDA-Public Use
  Company Number: US-TEVA-2018-US-946509

PATIENT
  Age: 17 Year
  Sex: Female

DRUGS (1)
  1. DIVALPROEX [Suspect]
     Active Substance: DIVALPROEX SODIUM
     Indication: EPILEPSY
     Route: 065

REACTIONS (4)
  - Diffuse alopecia [Recovering/Resolving]
  - Polycystic ovaries [Recovering/Resolving]
  - Hyperandrogenism [Recovering/Resolving]
  - Menstruation irregular [Recovering/Resolving]
